FAERS Safety Report 7597708-6 (Version None)
Quarter: 2011Q3

REPORT INFORMATION
  Report Type: 
  Country: None (occurrence: None)
  Receive Date: 20110708
  Receipt Date: 20110704
  Transmission Date: 20111222
  Serious: Yes (Hospitalization)
  Sender: FDA-Public Use
  Company Number: CA-GLAXOSMITHKLINE-A0934667A

PATIENT
  Sex: Female
  Weight: 100 kg

DRUGS (1)
  1. ADVAIR DISKUS 100/50 [Suspect]
     Indication: CHRONIC OBSTRUCTIVE PULMONARY DISEASE
     Dosage: 1PUFF TWICE PER DAY
     Route: 055
     Dates: start: 20040101

REACTIONS (5)
  - ASTHENIA [None]
  - COUGH [None]
  - DYSPNOEA [None]
  - TREATMENT NONCOMPLIANCE [None]
  - PRODUCTIVE COUGH [None]
